FAERS Safety Report 4547941-2 (Version None)
Quarter: 2004Q4

REPORT INFORMATION
  Report Type: 
  Country: None (occurrence: None)
  Receive Date: 20041220
  Receipt Date: 20031110
  Transmission Date: 20050328
  Serious: Yes (Hospitalization)
  Sender: FDA-Public Use
  Company Number: US_000848070

PATIENT
  Age: 64 Year
  Sex: Female
  Weight: 62 kg

DRUGS (6)
  1. LENTE ILETIN II (PORK) [Suspect]
     Indication: DIABETES MELLITUS
     Dosage: 20 U/DAY
     Dates: start: 19800101
  2. REGULAR ILETIN II (PORK) [Suspect]
     Indication: DIABETES MELLITUS
     Dosage: 11 U/DAY
     Dates: start: 19800101
  3. ILETIN [Suspect]
     Indication: DIABETES MELLITUS
  4. LENTE ILETIN (BEEF-PORK) INSULIN ZINC [Suspect]
     Indication: DIABETES MELLITUS
  5. HUMULIN R [Suspect]
     Indication: DIABETES MELLITUS
     Dates: start: 19990101, end: 19990101
  6. HUMULIN L [Suspect]
     Indication: DIABETES MELLITUS
     Dates: start: 19990101, end: 19990101

REACTIONS (8)
  - BLOOD GLUCOSE DECREASED [None]
  - BLOOD GLUCOSE INCREASED [None]
  - DIABETIC ULCER [None]
  - HYPERSENSITIVITY [None]
  - NERVOUSNESS [None]
  - PHOBIA [None]
  - SWELLING [None]
  - URTICARIA [None]
